FAERS Safety Report 9744402 (Version 3)
Quarter: 2014Q1

REPORT INFORMATION
  Report Type: Spontaneous
  Country: US (occurrence: US)
  Receive Date: 20131210
  Receipt Date: 20140130
  Transmission Date: 20141002
  Serious: Yes (Other)
  Sender: FDA-Public Use
  Company Number: US-TEVA-448803USA

PATIENT
  Age: 49 Year
  Sex: Female

DRUGS (1)
  1. GABITRIL [Suspect]
     Indication: CONVULSION
     Dosage: 8 MG AM/10 MG HS
     Dates: start: 20131201

REACTIONS (3)
  - Migraine [Not Recovered/Not Resolved]
  - Pain in extremity [Recovering/Resolving]
  - Abdominal pain upper [Recovering/Resolving]
